FAERS Safety Report 7232324-7 (Version None)
Quarter: 2011Q1

REPORT INFORMATION
  Report Type: 
  Country: None (occurrence: None)
  Receive Date: 20110106
  Receipt Date: 20101222
  Transmission Date: 20110831
  Serious: Yes (Disabling)
  Sender: FDA-Public Use
  Company Number: AUR-APL-2010-03219

PATIENT
  Age: 64 Year
  Sex: Female

DRUGS (2)
  1. ALENDRONATE SODIUM [Suspect]
     Indication: OSTEOPOROSIS
     Dosage: 70MG - UNK - ORAL
     Route: 048
     Dates: start: 20100629, end: 20100721
  2. ETANERCEPT [Concomitant]

REACTIONS (1)
  - DIARRHOEA HAEMORRHAGIC [None]
